FAERS Safety Report 5754323-4 (Version None)
Quarter: 2008Q2

REPORT INFORMATION
  Report Type: 
  Country: None (occurrence: None)
  Receive Date: 20080530
  Receipt Date: 20080505
  Transmission Date: 20081010
  Serious: No
  Sender: FDA-Public Use
  Company Number: US-ABBOTT-08P-163-0450792-00

PATIENT
  Sex: Female
  Weight: 106.69 kg

DRUGS (14)
  1. GENGRAF [Suspect]
     Indication: RENAL TRANSPLANT
     Dosage: 275 MG DAILY, 150 MG AM AND 125MG PM
     Route: 048
     Dates: start: 20070117
  2. CELPET [Concomitant]
     Indication: PROPHYLAXIS AGAINST TRANSPLANT REJECTION
     Dosage: 1000MG DAILY, 500 MG TWICE DAILY
     Route: 048
     Dates: start: 20070117
  3. PREDNISONE TAB [Concomitant]
     Indication: PROPHYLAXIS AGAINST TRANSPLANT REJECTION
     Route: 048
     Dates: start: 20070117
  4. LISINOPRIL [Concomitant]
     Indication: HYPERTENSION
     Route: 048
  5. ISOSORBIDE MONONITRATE [Concomitant]
     Indication: CARDIOVASCULAR EVENT PROPHYLAXIS
     Route: 048
     Dates: start: 20070401
  6. METOPROLOL TARTRATE [Concomitant]
     Indication: HYPERTENSION
     Dosage: 100 MG DAILY, 50MG TWICE DAILY
     Route: 048
  7. ASPIRIN [Concomitant]
     Indication: CARDIOVASCULAR EVENT PROPHYLAXIS
     Route: 048
     Dates: start: 20040101
  8. NORTRIPTYLINE HYDROCHLORIDE [Concomitant]
     Indication: PROPHYLAXIS OF NAUSEA AND VOMITING
     Route: 048
     Dates: start: 20070401
  9. NORTRIPTYLINE HYDROCHLORIDE [Concomitant]
     Indication: SLEEP DISORDER THERAPY
  10. NORTRIPTYLINE HYDROCHLORIDE [Concomitant]
     Indication: DEPRESSION
  11. INSULIN NOVOLOG [Concomitant]
     Indication: DIABETES MELLITUS
     Dosage: 15-22 UNITS WITH MEALS; VARIES
     Route: 058
     Dates: start: 19830101
  12. LENTIS - INSULIN [Concomitant]
     Indication: DIABETES MELLITUS
     Dosage: ONCE DAILY AT NIGHT
     Route: 058
  13. COLASE [Concomitant]
     Indication: CONSTIPATION PROPHYLAXIS
     Route: 048
     Dates: start: 20040101
  14. RANITIDINE HYDROCHLORIDE [Concomitant]
     Indication: DYSPEPSIA
     Route: 048
     Dates: start: 20070101

REACTIONS (1)
  - DRUG LEVEL INCREASED [None]
